FAERS Safety Report 7246884-3 (Version None)
Quarter: 2011Q1

REPORT INFORMATION
  Report Type: 
  Country: None (occurrence: None)
  Receive Date: 20110127
  Receipt Date: 20110113
  Transmission Date: 20110831
  Serious: Yes (Hospitalization, Other)
  Sender: FDA-Public Use
  Company Number: ES-ELI_LILLY_AND_COMPANY-ES201101002976

PATIENT
  Weight: 98 kg

DRUGS (14)
  1. EMCONCOR [Concomitant]
     Indication: CARDIAC DISORDER
     Dosage: 5 MG, 2/D
     Route: 048
  2. UNIKET [Concomitant]
     Dosage: 40 MG, 2/D
     Route: 048
  3. OMEPRAZOLE [Concomitant]
     Indication: GASTRITIS PROPHYLAXIS
     Dosage: 1 D/F, DAILY (1/D)
     Route: 048
  4. FORTEO [Suspect]
     Indication: HUMERUS FRACTURE
     Dosage: 20 UG, DAILY (1/D)
     Route: 058
     Dates: start: 20101222
  5. BECLOMETHASONE W/FENOTEROL [Concomitant]
     Indication: RESPIRATORY DISORDER
     Dosage: UNK, 2/D
     Route: 055
  6. MICARDIS [Concomitant]
     Indication: CARDIAC DISORDER
     Dosage: 1 D/F, DAILY (1/D)
     Route: 048
  7. PRAVASTATINA [Concomitant]
     Indication: BLOOD CHOLESTEROL
     Dosage: 1 D/F, DAILY (1/D)
     Route: 048
  8. VENTOLIN ES [Concomitant]
     Indication: RESPIRATORY DISORDER
     Dosage: UNK, AS NEEDED
     Route: 055
  9. METFORMIN HCL [Concomitant]
     Indication: DIABETES MELLITUS
     Dosage: 850 MG, EVERY 8 HRS
     Route: 048
  10. ATROVENT [Concomitant]
     Indication: RESPIRATORY DISORDER
     Dosage: UNK, 2/D
     Route: 055
  11. MASTICAL [Concomitant]
     Dosage: 1 D/F, DAILY (1/D)
     Route: 048
  12. FUROSEMIDA                         /00032601/ [Concomitant]
     Indication: DIURETIC THERAPY
     Dosage: 40 MG, 2/D
     Route: 048
  13. SINTROM [Concomitant]
     Indication: PROMOTION OF PERIPHERAL CIRCULATION
     Dosage: UNK, DAILY (1/D)
     Route: 048
  14. ETORICOXIB [Concomitant]
     Indication: SEDATIVE THERAPY
     Dosage: 60 MG, DAILY (1/D)
     Route: 048

REACTIONS (2)
  - CARDIAC FAILURE [None]
  - OFF LABEL USE [None]
